FAERS Safety Report 7800290-9 (Version None)
Quarter: 2011Q4

REPORT INFORMATION
  Report Type: 
  Country: None (occurrence: None)
  Receive Date: 20111006
  Receipt Date: 20110929
  Transmission Date: 20120403
  Serious: Yes (Life-Threatening)
  Sender: FDA-Public Use
  Company Number: JP-GLAXOSMITHKLINE-B0752054A

PATIENT
  Sex: Male
  Weight: 48 kg

DRUGS (13)
  1. LOSARTAN POTASSIUM [Concomitant]
     Dosage: 25MG PER DAY
     Route: 048
  2. DESYREL [Concomitant]
     Dosage: 50MG PER DAY
     Route: 048
  3. ACTONEL [Concomitant]
     Dosage: 17.5MG PER DAY
     Route: 048
  4. PROMACTA [Suspect]
     Indication: IDIOPATHIC THROMBOCYTOPENIC PURPURA
     Dosage: 12.5MG PER DAY
     Route: 048
     Dates: start: 20110425, end: 20110501
  5. DEPAS [Concomitant]
     Dosage: .5MG PER DAY
     Route: 048
  6. MAGMITT [Concomitant]
     Dosage: 1320MG PER DAY
     Route: 048
  7. PROMACTA [Suspect]
     Dosage: 25MG PER DAY
     Route: 048
     Dates: start: 20110502, end: 20110609
  8. FOIPAN [Concomitant]
     Dosage: 300MG PER DAY
     Route: 048
     Dates: start: 20110425, end: 20110515
  9. ADALAT [Concomitant]
     Dosage: 40MG PER DAY
     Route: 048
  10. OMEPRAZOLE [Concomitant]
     Indication: PROPHYLAXIS
     Dosage: 20MG PER DAY
     Route: 048
  11. CARVEDILOL [Concomitant]
     Dosage: 1.25MG PER DAY
     Route: 048
     Dates: start: 20110526
  12. ALFAROL [Concomitant]
     Dosage: .5MCG PER DAY
     Route: 048
  13. GASMOTIN [Concomitant]
     Dosage: 15MG PER DAY
     Route: 048

REACTIONS (1)
  - PULMONARY INFARCTION [None]
